FAERS Safety Report 14565181 (Version 2)
Quarter: 2018Q2

REPORT INFORMATION
  Report Type: Report from Study
  Country: None (occurrence: US)
  Receive Date: 20180223
  Receipt Date: 20180425
  Transmission Date: 20180711
  Serious: Yes (Hospitalization, Disabling)
  Sender: FDA-Public Use
  Company Number: US-ABBVIE-18K-163-2225657-00

PATIENT
  Age: 74 Year
  Sex: Female
  Weight: 140.74 kg

DRUGS (2)
  1. LASIX [Concomitant]
     Active Substance: FUROSEMIDE
     Indication: OEDEMA
  2. HUMIRA [Suspect]
     Active Substance: ADALIMUMAB
     Indication: RHEUMATOID ARTHRITIS
     Route: 058
     Dates: start: 201710

REACTIONS (15)
  - Gait inability [Not Recovered/Not Resolved]
  - Wrong technique in product usage process [Unknown]
  - Fall [Unknown]
  - Joint injury [Not Recovered/Not Resolved]
  - Influenza [Recovering/Resolving]
  - Weight increased [Recovered/Resolved]
  - Cardiac failure congestive [Recovering/Resolving]
  - Hand fracture [Recovering/Resolving]
  - Renal disorder [Unknown]
  - Oedema peripheral [Recovered/Resolved]
  - Contusion [Unknown]
  - Peripheral swelling [Unknown]
  - Hand fracture [Unknown]
  - Device issue [Unknown]
  - Oedema peripheral [Unknown]

NARRATIVE: CASE EVENT DATE: 201712
